FAERS Safety Report 7507078-7 (Version None)
Quarter: 2011Q2

REPORT INFORMATION
  Report Type: 
  Country: None (occurrence: None)
  Receive Date: 20110526
  Receipt Date: 20110322
  Transmission Date: 20111010
  Serious: No
  Sender: FDA-Public Use
  Company Number: US-MYLANLABS-2011S1005686

PATIENT
  Age: 67 Year
  Sex: Female

DRUGS (1)
  1. VERAPAMIL HYDROCHLORIDE [Suspect]
     Indication: BLOOD PRESSURE INCREASED
     Route: 048
     Dates: start: 20110223, end: 20110315

REACTIONS (12)
  - RHINORRHOEA [None]
  - INSOMNIA [None]
  - ASTHENIA [None]
  - DYSPNOEA [None]
  - GASTROOESOPHAGEAL REFLUX DISEASE [None]
  - THROAT IRRITATION [None]
  - ERUCTATION [None]
  - DEPRESSION [None]
  - PRURITUS [None]
  - CHEST DISCOMFORT [None]
  - COUGH [None]
  - APHONIA [None]
